FAERS Safety Report 10184113 (Version 1)
Quarter: 2014Q2

REPORT INFORMATION
  Report Type: Spontaneous
  Country: US (occurrence: US)
  Receive Date: 20140520
  Receipt Date: 20140520
  Transmission Date: 20141212
  Serious: No
  Sender: FDA-Public Use
  Company Number: US-ASTRAZENECA-2013SE51780

PATIENT
  Age: 31 Year
  Sex: Female
  Weight: 52.2 kg

DRUGS (5)
  1. BUDESONIDE [Suspect]
     Indication: CROHN^S DISEASE
     Dosage: MYLAN
     Route: 065
     Dates: start: 20130606, end: 20130611
  2. BUDESONIDE [Suspect]
     Indication: CROHN^S DISEASE
     Route: 048
     Dates: start: 20130612, end: 20130625
  3. BUDESONIDE [Suspect]
     Indication: CROHN^S DISEASE
     Route: 048
     Dates: start: 20130625
  4. AMITRIPTYLINE [Concomitant]
     Indication: GASTRIC DISORDER
  5. OTHER MEDICATIONS [Concomitant]
     Indication: GASTRIC DISORDER

REACTIONS (8)
  - Procedural pain [Unknown]
  - Weight decreased [Unknown]
  - Dyspnoea [Unknown]
  - Impaired healing [Unknown]
  - Diarrhoea [Unknown]
  - Adverse event [Unknown]
  - Increased tendency to bruise [Unknown]
  - Contusion [Unknown]
